FAERS Safety Report 6724797-0 (Version None)
Quarter: 2010Q2

REPORT INFORMATION
  Report Type: 
  Country: None (occurrence: None)
  Receive Date: 20100513
  Receipt Date: 20100513
  Transmission Date: 20101027
  Serious: No
  Sender: FDA-Public Use
  Company Number: None

PATIENT
  Age: 31 Year
  Sex: Female
  Weight: 69.9 kg

DRUGS (1)
  1. LAMOTRIGINE [Suspect]
     Indication: CONVULSION
     Dosage: 25 MG EVERY DAY PO
     Route: 048
     Dates: start: 20100305, end: 20100323

REACTIONS (3)
  - ERYTHEMA MULTIFORME [None]
  - OEDEMA PERIPHERAL [None]
  - SWELLING FACE [None]
